FAERS Safety Report 4752274-5 (Version None)
Quarter: 2005Q3

REPORT INFORMATION
  Report Type: 
  Country: None (occurrence: None)
  Receive Date: 20050825
  Receipt Date: 20040908
  Transmission Date: 20060218
  Serious: Yes (Hospitalization)
  Sender: FDA-Public Use
  Company Number: 2004AP04768

PATIENT
  Age: 62 Year
  Sex: Female

DRUGS (2)
  1. ARIMIDEX [Suspect]
     Indication: BREAST CANCER
     Route: 048
     Dates: start: 20031104
  2. RADIATION THERAPY [Suspect]
     Indication: BREAST CANCER
     Dosage: TOTAL RADIATION 50 GY
     Dates: start: 20031104

REACTIONS (2)
  - CRYPTOGENIC ORGANIZING PNEUMONIA [None]
  - DRUG INEFFECTIVE [None]
